FAERS Safety Report 18446013 (Version 2)
Quarter: 2021Q1

REPORT INFORMATION
  Report Type: Spontaneous
  Country: US (occurrence: US)
  Receive Date: 20201030
  Receipt Date: 20210201
  Transmission Date: 20210419
  Serious: Yes (Hospitalization, Other)
  Sender: FDA-Public Use
  Company Number: US-TAKEDA-2020TUS045191

PATIENT
  Sex: Female

DRUGS (1)
  1. GAMMAGARD LIQUID [Suspect]
     Active Substance: HUMAN IMMUNOGLOBULIN G
     Indication: GOOD SYNDROME
     Dosage: 209.6 GRAM, Q4WEEKS
     Route: 065
     Dates: start: 20200415

REACTIONS (3)
  - Asthenia [Unknown]
  - Motor dysfunction [Unknown]
  - Mobility decreased [Not Recovered/Not Resolved]
